FAERS Safety Report 19984531 (Version 1)
Quarter: 2021Q4

REPORT INFORMATION
  Report Type: Spontaneous
  Country: US (occurrence: US)
  Receive Date: 20211021
  Receipt Date: 20211021
  Transmission Date: 20220303
  Serious: Yes (Other)
  Sender: FDA-Public Use
  Company Number: US-FRESENIUS KABI-FK202111369

PATIENT
  Age: 50 Year
  Sex: Male

DRUGS (1)
  1. LACTULOSE [Suspect]
     Active Substance: LACTULOSE
     Indication: Abdominal distension
     Dosage: ENEMA
     Route: 065

REACTIONS (2)
  - Air embolism [Unknown]
  - Pneumatosis intestinalis [Unknown]
